FAERS Safety Report 13382256 (Version 1)
Quarter: 2017Q1

REPORT INFORMATION
  Report Type: Spontaneous
  Country: DE (occurrence: DE)
  Receive Date: 20170329
  Receipt Date: 20170329
  Transmission Date: 20170429
  Serious: Yes (Other)
  Sender: FDA-Public Use
  Company Number: DE-SA-2017SA018323

PATIENT
  Age: 34 Year
  Sex: Male
  Weight: 139 kg

DRUGS (14)
  1. ALIROCUMAB PREFILLED PEN [Concomitant]
     Active Substance: ALIROCUMAB
     Indication: TYPE IIA HYPERLIPIDAEMIA
     Dates: start: 20161129, end: 20170111
  2. CARVEDILOL. [Concomitant]
     Active Substance: CARVEDILOL
     Indication: HYPERTENSION
     Dosage: DOSAGE REGIMEN: 1-0-1?STRENGTH: 25MG
     Route: 048
     Dates: start: 2016
  3. EZETROL [Concomitant]
     Active Substance: EZETIMIBE
     Indication: CORONARY ARTERY DISEASE
     Dosage: DOSAGE REGIMEN:1-0-0?STRENGTH: 10MG
     Route: 048
     Dates: start: 2016
  4. ASPIRIN. [Concomitant]
     Active Substance: ASPIRIN
     Indication: HYPERTENSION
     Dosage: DOSAGE REGIMEN: 1-0-0?STRENGTH: 100MG
     Route: 048
     Dates: start: 2016
  5. CARVEDILOL. [Concomitant]
     Active Substance: CARVEDILOL
     Indication: CORONARY ARTERY DISEASE
     Dosage: DOSAGE REGIMEN: 1-0-1?STRENGTH: 25MG
     Route: 048
     Dates: start: 2016
  6. ATORVASTATIN [Concomitant]
     Active Substance: ATORVASTATIN
     Indication: CORONARY ARTERY DISEASE
     Dosage: STRENGTH: 80 MG?DOSAGE REGIMEN: 0-0-1
     Route: 048
     Dates: start: 2016
  7. AMLODIPIN [Concomitant]
     Active Substance: AMLODIPINE BESYLATE
     Indication: CORONARY ARTERY DISEASE
     Dosage: DOSAGE REGIMEN: 1-0-1?STRENGTH: 10MG
     Route: 048
     Dates: start: 2016
  8. ASPIRIN. [Concomitant]
     Active Substance: ASPIRIN
     Indication: CORONARY ARTERY DISEASE
     Dosage: DOSAGE REGIMEN: 1-0-0?STRENGTH: 100MG
     Route: 048
     Dates: start: 2016
  9. EZETROL [Concomitant]
     Active Substance: EZETIMIBE
     Indication: HYPERTENSION
     Dosage: DOSAGE REGIMEN:1-0-0?STRENGTH: 10MG
     Route: 048
     Dates: start: 2016
  10. RAMI PLUS [Concomitant]
     Indication: HYPERTENSION
     Dosage: DOSAGE REGIMEN: 1-0-0?STRENGTH: 5/25MG
     Route: 048
     Dates: start: 2016
  11. AMLODIPIN [Concomitant]
     Active Substance: AMLODIPINE BESYLATE
     Indication: HYPERTENSION
     Dosage: DOSAGE REGIMEN: 1-0-1?STRENGTH: 10MG
     Route: 048
     Dates: start: 2016
  12. PRALUENT [Suspect]
     Active Substance: ALIROCUMAB
     Indication: TYPE IIA HYPERLIPIDAEMIA
     Route: 058
     Dates: start: 20161129, end: 20170111
  13. ATORVASTATIN [Concomitant]
     Active Substance: ATORVASTATIN
     Indication: HYPERTENSION
     Dosage: STRENGTH: 80 MG?DOSAGE REGIMEN: 0-0-1
     Route: 048
     Dates: start: 2016
  14. RAMI PLUS [Concomitant]
     Indication: CORONARY ARTERY DISEASE
     Dosage: DOSAGE REGIMEN: 1-0-0?STRENGTH: 5/25MG
     Route: 048
     Dates: start: 2016

REACTIONS (2)
  - Rhabdomyolysis [Recovered/Resolved]
  - Blood creatine phosphokinase increased [Recovered/Resolved]

NARRATIVE: CASE EVENT DATE: 20161215
